FAERS Safety Report 4901829-3 (Version None)
Quarter: 2006Q1

REPORT INFORMATION
  Report Type: 
  Country: None (occurrence: None)
  Receive Date: 20060203
  Receipt Date: 20060203
  Transmission Date: 20060701
  Serious: Yes (Life-Threatening, Hospitalization, Disabling)
  Sender: FDA-Public Use
  Company Number: None

PATIENT
  Sex: Female
  Weight: 52.1637 kg

DRUGS (1)
  1. ORTHO EVRA [Suspect]
     Indication: CONTRACEPTION
     Dosage: 1 PATCH WEEKLY/SKIP 4TH WK TRANSDERMAL
     Route: 062
     Dates: start: 20031210, end: 20040525

REACTIONS (6)
  - FATIGUE [None]
  - GASTROOESOPHAGEAL REFLUX DISEASE [None]
  - MEDICAL DEVICE REMOVAL [None]
  - PAIN [None]
  - PULMONARY EMBOLISM [None]
  - THROMBOSIS [None]
